FAERS Safety Report 7042714-3 (Version None)
Quarter: 2010Q4

REPORT INFORMATION
  Report Type: 
  Country: None (occurrence: None)
  Receive Date: 20101013
  Receipt Date: 20100106
  Transmission Date: 20110411
  Serious: No
  Sender: FDA-Public Use
  Company Number: US-ASTRAZENECA-2010SE00560

PATIENT
  Age: 60 Year
  Sex: Female
  Weight: 83.9 kg

DRUGS (9)
  1. SYMBICORT [Suspect]
     Route: 055
     Dates: start: 20090101
  2. MORPHINE [Concomitant]
     Indication: OSTEOPOROSIS
  3. MORPHINE [Concomitant]
     Indication: PAIN
  4. PHENERGAN [Concomitant]
  5. FLEXERIL [Concomitant]
  6. PROAIR HFA [Concomitant]
  7. CALTRATE [Concomitant]
  8. VITAMIN D [Concomitant]
  9. FORTEO [Concomitant]

REACTIONS (3)
  - OROPHARYNGEAL PAIN [None]
  - UPPER RESPIRATORY TRACT INFECTION [None]
  - WEIGHT INCREASED [None]
